FAERS Safety Report 24200832 (Version 1)
Quarter: 2024Q3

REPORT INFORMATION
  Report Type: Spontaneous
  Country: FR (occurrence: FR)
  Receive Date: 20240812
  Receipt Date: 20240812
  Transmission Date: 20241017
  Serious: Yes (Hospitalization)
  Sender: VERTEX
  Company Number: None

PATIENT
  Sex: Male

DRUGS (1)
  1. ELEXACAFTOR\IVACAFTOR\TEZACAFTOR [Suspect]
     Active Substance: ELEXACAFTOR\IVACAFTOR\TEZACAFTOR
     Indication: Cystic fibrosis
     Dosage: IVACAFTOR/TEZACAFTOR/ELEXACAFTOR, FREQ UNK
     Route: 048
     Dates: end: 20240522

REACTIONS (2)
  - Diaphragmatic hernia [Unknown]
  - Ductus arteriosus premature closure [Recovering/Resolving]

NARRATIVE: CASE EVENT DATE: 20240522
